FAERS Safety Report 20182615 (Version 3)
Quarter: 2022Q1

REPORT INFORMATION
  Report Type: Spontaneous
  Country: IT (occurrence: IT)
  Receive Date: 20211214
  Receipt Date: 20220103
  Transmission Date: 20220423
  Serious: Yes (Hospitalization)
  Sender: FDA-Public Use
  Company Number: None

PATIENT
  Age: 47 Year
  Sex: Male

DRUGS (2)
  1. DULOXETINE HYDROCHLORIDE [Suspect]
     Active Substance: DULOXETINE HYDROCHLORIDE
     Indication: Product used for unknown indication
     Dosage: 1680 MG, UNKNOWN
     Route: 048
     Dates: start: 20211005, end: 20211005
  2. MIRTAZAPINE [Suspect]
     Active Substance: MIRTAZAPINE
     Indication: Product used for unknown indication
     Dosage: 1680 MG, UNKNOWN
     Route: 048
     Dates: start: 20211005, end: 20211005

REACTIONS (2)
  - Drug abuse [Unknown]
  - Agitation [Unknown]

NARRATIVE: CASE EVENT DATE: 20211006
